FAERS Safety Report 20061070 (Version 1)
Quarter: 2021Q4

REPORT INFORMATION
  Report Type: Spontaneous
  Country: JP (occurrence: JP)
  Receive Date: 20211112
  Receipt Date: 20211112
  Transmission Date: 20220303
  Serious: Yes (Other)
  Sender: FDA-Public Use
  Company Number: JP-Accord-244601

PATIENT
  Age: 66 Year
  Sex: Female

DRUGS (1)
  1. CISPLATIN [Suspect]
     Active Substance: CISPLATIN
     Indication: Cervix carcinoma

REACTIONS (3)
  - Neutropenia [Unknown]
  - Sepsis [Unknown]
  - Gastrointestinal bacterial infection [Recovered/Resolved]
